FAERS Safety Report 5780878-X (Version None)
Quarter: 2008Q2

REPORT INFORMATION
  Report Type: 
  Country: None (occurrence: None)
  Receive Date: 20080620
  Receipt Date: 20080609
  Transmission Date: 20081010
  Serious: Yes (Other)
  Sender: FDA-Public Use
  Company Number: US-PFIZER INC-2008048870

PATIENT
  Sex: Female
  Weight: 64.09 kg

DRUGS (9)
  1. CHANTIX [Suspect]
     Indication: EX-SMOKER
     Route: 048
  2. PREMARIN [Concomitant]
  3. MAXIDEX [Concomitant]
  4. XANAX [Concomitant]
  5. HYOSCYAMINE [Concomitant]
  6. OMEPRAZOLE [Concomitant]
  7. IMITREX [Concomitant]
  8. DISPRIN [Concomitant]
  9. ZOLOFT [Concomitant]

REACTIONS (10)
  - ABNORMAL BEHAVIOUR [None]
  - ANXIETY [None]
  - CONFUSIONAL STATE [None]
  - DEPRESSION [None]
  - DYSARTHRIA [None]
  - HEADACHE [None]
  - SPEECH DISORDER [None]
  - SUICIDAL BEHAVIOUR [None]
  - SUICIDAL IDEATION [None]
  - TREMOR [None]
